FAERS Safety Report 19938887 (Version 2)
Quarter: 2021Q4

REPORT INFORMATION
  Report Type: Report from Study
  Country: US (occurrence: US)
  Receive Date: 20211011
  Receipt Date: 20211012
  Transmission Date: 20220303
  Serious: Yes (Death, Other)
  Sender: FDA-Public Use
  Company Number: US-GLAXOSMITHKLINE-US2021AMR095812

PATIENT
  Sex: Male

DRUGS (1)
  1. BELANTAMAB MAFODOTIN [Suspect]
     Active Substance: BELANTAMAB MAFODOTIN
     Indication: Product used for unknown indication
     Dosage: UNK
     Route: 042
     Dates: start: 20210317, end: 20210708

REACTIONS (6)
  - Death [Fatal]
  - Pneumonia [Unknown]
  - Keratopathy [Unknown]
  - Visual acuity reduced [Unknown]
  - Therapy non-responder [Unknown]
  - Malnutrition [Unknown]
